FAERS Safety Report 17174298 (Version 5)
Quarter: 2020Q1

REPORT INFORMATION
  Report Type: Spontaneous
  Country: JP (occurrence: JP)
  Receive Date: 20191219
  Receipt Date: 20200330
  Transmission Date: 20200409
  Serious: Yes (Life-Threatening, Hospitalization, Other)
  Sender: FDA-Public Use
  Company Number: JP-PFIZER INC-2019521014

PATIENT
  Age: 19 Year
  Sex: Male
  Weight: 61.7 kg

DRUGS (60)
  1. BESPONSA [Suspect]
     Active Substance: INOTUZUMAB OZOGAMICIN
     Dosage: 0.5 MG/M2, 1X/DAY
     Dates: start: 20191004, end: 20191004
  2. BESPONSA [Suspect]
     Active Substance: INOTUZUMAB OZOGAMICIN
     Dosage: 0.5 MG/M2, 1X/DAY
     Dates: start: 20191011, end: 20191011
  3. ORGARAN [Concomitant]
     Active Substance: DANAPAROID SODIUM
     Indication: VASCULAR DISORDER PROPHYLAXIS
     Dosage: 1250 IU, 2X/DAY
     Route: 042
     Dates: start: 20191115
  4. LEUCOVORIN [CALCIUM FOLINATE] [Concomitant]
     Active Substance: LEUCOVORIN
     Dosage: 17.5 UNK, UNK
     Route: 017
     Dates: start: 20191123, end: 20191123
  5. LANSOPRAZOLE. [Concomitant]
     Active Substance: LANSOPRAZOLE
     Indication: PROPHYLAXIS AGAINST GASTROINTESTINAL ULCER
     Dosage: 15 MG, 1X/DAY
     Route: 048
     Dates: end: 20191122
  6. MAGNESIUM OXIDE. [Concomitant]
     Active Substance: MAGNESIUM OXIDE
     Indication: CONSTIPATION
     Dosage: 990 MG, 3X/DAY
     Route: 048
     Dates: end: 20191122
  7. FUNGUARD [Concomitant]
     Active Substance: MICAFUNGIN SODIUM
     Dosage: 150 MG, 1X/DAY
     Dates: start: 20191127, end: 20191129
  8. LEUCOVORIN [CALCIUM FOLINATE] [Concomitant]
     Active Substance: LEUCOVORIN
     Dosage: 17.5 UNK, UNK
     Route: 017
     Dates: start: 20191126, end: 20191126
  9. OMEPRAZOLE. [Concomitant]
     Active Substance: OMEPRAZOLE
     Indication: GASTRIC ULCER
     Dosage: 20 MG, 2X/DAY
     Route: 042
     Dates: start: 20191123
  10. VFEND [Concomitant]
     Active Substance: VORICONAZOLE
     Indication: FEBRILE NEUTROPENIA
     Dosage: 370 MG, 2X/DAY
     Route: 042
     Dates: start: 20191130
  11. ACELIO [Concomitant]
     Active Substance: ACETAMINOPHEN
     Indication: PYREXIA
     Dosage: 500 MG, 2X/DAY
     Route: 042
     Dates: start: 20191201
  12. OLOPATADINE. [Concomitant]
     Active Substance: OLOPATADINE
     Indication: SINUSITIS
     Dosage: 5 MG, 2X/DAY
     Route: 048
     Dates: start: 20191112, end: 20191119
  13. LOXOPROFEN [Concomitant]
     Active Substance: LOXOPROFEN
     Indication: PAIN
     Dosage: 60 MG, 3X/DAY
     Route: 048
     Dates: start: 20191123, end: 20191127
  14. AMITIZA [Concomitant]
     Active Substance: LUBIPROSTONE
     Indication: CONSTIPATION
     Dosage: 24 MG, 2X/DAY
     Route: 048
     Dates: end: 20191121
  15. HANGE-SHASHIN-TO [Concomitant]
     Active Substance: HERBALS
     Indication: STOMATITIS
     Dosage: 2.5 G, 3X/DAY
     Route: 048
     Dates: start: 20191115
  16. ACICLOVIR [Concomitant]
     Active Substance: ACYCLOVIR
     Indication: FEBRILE NEUTROPENIA
     Dosage: 200 MG, UNK
     Route: 048
     Dates: end: 20191122
  17. ALOXI [Concomitant]
     Active Substance: PALONOSETRON HYDROCHLORIDE
     Indication: ANTIEMETIC SUPPORTIVE CARE
  18. HAPTOGLOBIN [Concomitant]
     Indication: MEDICAL PROCEDURE
     Dosage: 4000 IU, 1X/DAY
     Route: 042
     Dates: start: 20191120, end: 20191120
  19. FILGRASTIM [Concomitant]
     Active Substance: FILGRASTIM
     Indication: MEDICAL PROCEDURE
     Dosage: 525 MG, 1X/DAY
     Route: 042
     Dates: start: 20191125
  20. METHOTREXATE. [Concomitant]
     Active Substance: METHOTREXATE
     Indication: PROPHYLAXIS AGAINST GRAFT VERSUS HOST DISEASE
     Dosage: 20 1X/DAY
     Route: 042
     Dates: start: 20191121, end: 20191121
  21. FENTANYL. [Concomitant]
     Active Substance: FENTANYL
     Indication: PAIN
     Dosage: UNK
     Route: 042
     Dates: start: 20191128
  22. CUBICIN [Concomitant]
     Active Substance: DAPTOMYCIN
     Indication: FEBRILE NEUTROPENIA
     Dosage: 350 MG, 1X/DAY
     Route: 042
     Dates: start: 20191129
  23. VFEND [Concomitant]
     Active Substance: VORICONAZOLE
     Dosage: 180 MG, 2X/DAY
     Route: 042
     Dates: start: 20191201
  24. ELNEOPA NO.1 [Concomitant]
     Active Substance: AMINO ACIDS\DEXTROSE\ELECTROLYTES NOS\MINERALS\VITAMINS
     Indication: DECREASED APPETITE
     Dosage: UNK
     Route: 042
     Dates: start: 20191121, end: 20191124
  25. ELENTAL [Concomitant]
     Active Substance: AMINO ACIDS\CARBOHYDRATES\MINERALS\SOYBEAN OIL\VITAMINS
     Indication: DECREASED APPETITE
     Dosage: 1 DF, 1X/DAY
     Route: 048
     Dates: start: 20191114
  26. FEBURIC [Concomitant]
     Active Substance: FEBUXOSTAT
     Indication: HYPERURICAEMIA
     Dosage: 20 MG, 1X/DAY
     Route: 048
     Dates: start: 20191115, end: 20191119
  27. BESPONSA [Suspect]
     Active Substance: INOTUZUMAB OZOGAMICIN
     Indication: ACUTE LYMPHOCYTIC LEUKAEMIA RECURRENT
     Dosage: 0.8 MG/M2, 1X/DAY
     Route: 042
     Dates: start: 20190927, end: 20190927
  28. GRANISETRON [Concomitant]
     Active Substance: GRANISETRON
     Indication: ANTIEMETIC SUPPORTIVE CARE
  29. DEXART [Concomitant]
     Active Substance: DEXAMETHASONE SODIUM PHOSPHATE
     Indication: NERVOUS SYSTEM DISORDER PROPHYLAXIS
     Dosage: 3.3 MG, 2X/DAY
     Route: 042
     Dates: start: 20191115, end: 20191115
  30. DEXART [Concomitant]
     Active Substance: DEXAMETHASONE SODIUM PHOSPHATE
     Dosage: 3.3 MG, 2X/DAY
     Route: 042
     Dates: start: 20191118, end: 20191119
  31. METHOTREXATE. [Concomitant]
     Active Substance: METHOTREXATE
     Dosage: 17.5 UNK, 1X/DAY
     Route: 042
     Dates: start: 20191123, end: 20191123
  32. METHOTREXATE. [Concomitant]
     Active Substance: METHOTREXATE
     Dosage: 17.5 UNK, 1X/DAY
     Route: 042
     Dates: start: 20191126, end: 20191126
  33. ROPION [Concomitant]
     Active Substance: FLURBIPROFEN AXETIL
     Indication: PAIN
     Dosage: 50 MG, 3X/DAY
     Route: 042
     Dates: start: 20191129, end: 20191130
  34. SENNOSIDE [Concomitant]
     Active Substance: SENNOSIDES
     Indication: CONSTIPATION
     Dosage: 48 MG, 1X/DAY
     Route: 048
     Dates: end: 20191121
  35. PREVYMIS [Concomitant]
     Active Substance: LETERMOVIR
     Indication: ANTIVIRAL PROPHYLAXIS
     Dosage: 480 MG, 1X/DAY
     Route: 048
     Dates: start: 20191120
  36. BESPONSA [Suspect]
     Active Substance: INOTUZUMAB OZOGAMICIN
     Dosage: 0.5 MG/M2, 1X/DAY
     Dates: start: 20191025, end: 20191025
  37. GLYMACKEN [Concomitant]
     Indication: NERVOUS SYSTEM DISORDER PROPHYLAXIS
     Dosage: 200 ML, 2X/DAY
     Route: 042
     Dates: start: 20191115, end: 20191115
  38. GLYMACKEN [Concomitant]
     Dosage: 200 ML, 2X/DAY
     Route: 042
     Dates: start: 20191118, end: 20191119
  39. GRANISETRON [Concomitant]
     Active Substance: GRANISETRON
     Indication: MEDICAL PROCEDURE
     Dosage: 3 MG, 2X/DAY
     Route: 042
     Dates: start: 20191115, end: 20191118
  40. CEFEPIME [Concomitant]
     Active Substance: CEFEPIME HYDROCHLORIDE
     Indication: FEBRILE NEUTROPENIA
     Dosage: 2 G, 2X/DAY
     Route: 042
     Dates: start: 20191121, end: 20191125
  41. MEROPEN [MEROPENEM] [Concomitant]
     Active Substance: MEROPENEM
     Indication: FEBRILE NEUTROPENIA
     Dosage: 1 G, 3X/DAY
     Route: 042
     Dates: start: 20191125
  42. VANCOMYCIN [Concomitant]
     Active Substance: VANCOMYCIN
     Indication: FEBRILE NEUTROPENIA
     Dosage: 1000 MG, UNK
     Route: 042
     Dates: start: 20191127, end: 20191129
  43. MAGNESIUM SULFATE. [Concomitant]
     Active Substance: MAGNESIUM SULFATE
     Indication: HYPOMAGNESAEMIA
     Dosage: 20 ML 1X/DAY
     Route: 042
     Dates: start: 20191128, end: 20191130
  44. ACICLOVIR [Concomitant]
     Active Substance: ACYCLOVIR
     Indication: ANTIVIRAL PROPHYLAXIS
     Dosage: 250 MG, 3X/DAY
     Route: 042
     Dates: start: 20191122
  45. PIARLE [Concomitant]
     Active Substance: LACTULOSE
     Indication: CONSTIPATION
     Dosage: 20 ML 3X/DAY
     Route: 048
     Dates: end: 20191121
  46. LEVOFLOXACIN. [Concomitant]
     Active Substance: LEVOFLOXACIN
     Indication: FEBRILE NEUTROPENIA
     Dosage: 500 MG, 1X/DAY
     Route: 048
     Dates: start: 20191115, end: 20191121
  47. PROGRAF [Concomitant]
     Active Substance: TACROLIMUS
     Indication: PROPHYLAXIS AGAINST GRAFT VERSUS HOST DISEASE
     Dosage: UNK
     Route: 042
     Dates: start: 20191119
  48. FUNGUARD [Concomitant]
     Active Substance: MICAFUNGIN SODIUM
     Indication: PROPHYLAXIS
     Dosage: 50 MG, 1X/DAY
     Route: 042
     Dates: start: 20191115, end: 20191126
  49. ALOXI [Concomitant]
     Active Substance: PALONOSETRON HYDROCHLORIDE
     Indication: MEDICAL PROCEDURE
     Dosage: 0.75 MG, 1X/DAY
     Route: 042
     Dates: start: 20191119, end: 20191119
  50. ALKERAN [Concomitant]
     Active Substance: MELPHALAN
     Indication: MEDICAL PROCEDURE
     Dosage: 195 MG, 1X/DAY
     Route: 042
     Dates: start: 20191117, end: 20191117
  51. NONTHRON [Concomitant]
     Indication: ANTITHROMBIN III DECREASED
     Dosage: 1500 IU, 1X/DAY
     Route: 042
     Dates: start: 20191201
  52. RECOMODULIN [Concomitant]
     Active Substance: THROMBOMODULIN ALFA
     Indication: DISSEMINATED INTRAVASCULAR COAGULATION
     Dosage: 7800 IU, 1X/DAY
     Route: 042
     Dates: start: 20191201, end: 20191201
  53. ALBUMIN [Concomitant]
     Active Substance: ALBUMIN HUMAN
     Indication: HYPOALBUMINAEMIA
     Dosage: 250 MG, 1X/DAY
     Route: 042
     Dates: start: 20191201, end: 20191201
  54. CARBOCISTEINE [Concomitant]
     Active Substance: CARBOCYSTEINE
     Indication: SINUSITIS
     Dosage: 500 MG, 3X/DAY
     Route: 048
     Dates: start: 20191107, end: 20191122
  55. ATARAX-P [HYDROXYZINE HYDROCHLORIDE] [Concomitant]
     Indication: MEDICAL PROCEDURE
     Dosage: 50 MG, 1X/DAY
     Route: 042
     Dates: start: 20191120
  56. LASIX [Concomitant]
     Active Substance: FUROSEMIDE
     Indication: POLYURIA
     Dosage: 20 MG, 2X/DAY
     Route: 042
     Dates: start: 20191117
  57. LEUCOVORIN [CALCIUM FOLINATE] [Concomitant]
     Active Substance: LEUCOVORIN
     Indication: PROPHYLAXIS
     Dosage: 20 MG, 3X/DAY
     Route: 042
     Dates: start: 20191121, end: 20191121
  58. ELNEOPA NO.1 [Concomitant]
     Active Substance: AMINO ACIDS\DEXTROSE\ELECTROLYTES NOS\MINERALS\VITAMINS
     Dosage: UNK
     Dates: start: 20191125, end: 20191201
  59. URSODEOXYCHOLIC ACID [Concomitant]
     Active Substance: URSODIOL
     Indication: HEPATIC ENZYME INCREASED
     Dosage: 300 MG, 3X/DAY
     Route: 048
  60. CLARITHROMYCIN. [Concomitant]
     Active Substance: CLARITHROMYCIN
     Indication: SINUSITIS
     Dosage: 200 MG, 2X/DAY
     Route: 048
     Dates: start: 20191107, end: 20191121

REACTIONS (8)
  - Coma hepatic [Recovering/Resolving]
  - Hepatic failure [Recovering/Resolving]
  - Hepatic encephalopathy [Recovering/Resolving]
  - Venoocclusive liver disease [Recovering/Resolving]
  - Acute kidney injury [Recovering/Resolving]
  - Graft versus host disease [Unknown]
  - Engraftment syndrome [Recovered/Resolved]
  - Platelet count decreased [Unknown]

NARRATIVE: CASE EVENT DATE: 20191201
